FAERS Safety Report 18253199 (Version 1)
Quarter: 2020Q3

REPORT INFORMATION
  Report Type: Spontaneous
  Country: US (occurrence: US)
  Receive Date: 20200910
  Receipt Date: 20200910
  Transmission Date: 20201103
  Serious: Yes (Other)
  Sender: FDA-Public Use
  Company Number: US-TARO-2020TAR01448

PATIENT
  Age: 48 Year
  Sex: Male

DRUGS (4)
  1. AZELASTINE HYDROCHLORIDE. [Concomitant]
     Active Substance: AZELASTINE HYDROCHLORIDE
     Indication: PRODUCT USED FOR UNKNOWN INDICATION
     Dosage: UNK
     Route: 045
  2. FLUTICASONE PROPIONATE. [Suspect]
     Active Substance: FLUTICASONE PROPIONATE
     Indication: PRODUCT USED FOR UNKNOWN INDICATION
     Dosage: UNK
     Route: 045
  3. CLOBETASOL [Suspect]
     Active Substance: CLOBETASOL
     Dosage: UNK, SIX MONTHS LATER, RESTARTED CLOBETASOL WITHOUT THE INTRANASAL PREPARATIONS
     Route: 061
  4. CLOBETASOL [Suspect]
     Active Substance: CLOBETASOL
     Indication: PSORIASIS
     Dosage: UNK, DISCONTINUE TOPICAL AND INTRANASAL STEROIDS
     Route: 061

REACTIONS (1)
  - Chorioretinopathy [Recovered/Resolved]
